FAERS Safety Report 6726029-6 (Version None)
Quarter: 2010Q2

REPORT INFORMATION
  Report Type: 
  Country: None (occurrence: None)
  Receive Date: 20100514
  Receipt Date: 20100506
  Transmission Date: 20101027
  Serious: Yes (Other)
  Sender: FDA-Public Use
  Company Number: US-AMGEN-QUU407218

PATIENT
  Sex: Female
  Weight: 64.5 kg

DRUGS (17)
  1. ARANESP [Suspect]
     Indication: MYELODYSPLASTIC SYNDROME
     Route: 058
     Dates: start: 20090115, end: 20100315
  2. FERROUS SULFATE TAB [Concomitant]
  3. ENALAPRIL MALEATE [Concomitant]
  4. VITAMIN B-12 [Concomitant]
  5. METFORMIN HYDROCHLORIDE [Concomitant]
  6. OS-CAL [Concomitant]
  7. PREVACID [Concomitant]
  8. ANADROL [Concomitant]
  9. FOLIC ACID [Concomitant]
  10. HYDRODIURIL [Concomitant]
  11. METOPROLOL SUCCINATE [Concomitant]
  12. PRAVACHOL [Concomitant]
  13. LISINOPRIL [Concomitant]
  14. POTASSIUM [Concomitant]
  15. BONIVA [Concomitant]
  16. NEXIUM [Concomitant]
  17. RED BLOOD CELLS [Concomitant]
     Dates: start: 20090107

REACTIONS (3)
  - APLASIA PURE RED CELL [None]
  - MARROW HYPERPLASIA [None]
  - THERAPEUTIC RESPONSE DECREASED [None]
